FAERS Safety Report 12066344 (Version 2)
Quarter: 2017Q2

REPORT INFORMATION
  Report Type: Spontaneous
  Country: US (occurrence: US)
  Receive Date: 20160210
  Receipt Date: 20170405
  Transmission Date: 20170829
  Serious: Yes (Other)
  Sender: FDA-Public Use
  Company Number: US-JNJFOC-20160124518

PATIENT
  Sex: Male

DRUGS (1)
  1. RISPERDAL [Suspect]
     Active Substance: RISPERIDONE
     Indication: SCHIZOPHRENIA
     Dosage: IN VARYING DOSES OF 0.50 MG, 1.00 MG AND 2.00 MG
     Route: 048
     Dates: start: 2013, end: 2014

REACTIONS (7)
  - Suicidal ideation [Unknown]
  - Gynaecomastia [Unknown]
  - Sedation [Unknown]
  - Abnormal weight gain [Unknown]
  - Fatigue [Unknown]
  - Somnolence [Unknown]
  - Drug dose omission [Unknown]

NARRATIVE: CASE EVENT DATE: 2014
